FAERS Safety Report 7345515-1 (Version None)
Quarter: 2011Q1

REPORT INFORMATION
  Report Type: 
  Country: None (occurrence: None)
  Receive Date: 20110310
  Receipt Date: 20110302
  Transmission Date: 20110831
  Serious: Yes (Death)
  Sender: FDA-Public Use
  Company Number: US-GILEAD-2011-0035801

PATIENT
  Sex: Female

DRUGS (2)
  1. LETAIRIS [Suspect]
     Indication: PULMONARY HYPERTENSION
     Route: 048
     Dates: start: 20101227, end: 20110112
  2. LETAIRIS [Suspect]
     Indication: SCLERODERMA

REACTIONS (4)
  - COR PULMONALE [None]
  - RESPIRATORY FAILURE [None]
  - PNEUMONIA [None]
  - RIGHT VENTRICULAR FAILURE [None]
